FAERS Safety Report 16708597 (Version 4)
Quarter: 2020Q3

REPORT INFORMATION
  Report Type: Spontaneous
  Country: US (occurrence: US)
  Receive Date: 20190816
  Receipt Date: 20200927
  Transmission Date: 20201102
  Serious: Yes (Other)
  Sender: FDA-Public Use
  Company Number: US-ROCHE-2372801

PATIENT
  Sex: Male

DRUGS (4)
  1. AZELASTINE HYDROCHLORIDE. [Concomitant]
     Active Substance: AZELASTINE HYDROCHLORIDE
     Dosage: SOLUTION 0.15%
  2. ESBRIET [Suspect]
     Active Substance: PIRFENIDONE
     Indication: IDIOPATHIC PULMONARY FIBROSIS
     Dosage: 3 TABLET BY MOUTH 3 TIMES A DAY
     Route: 048
     Dates: start: 201812
  3. ALBUTEROL SULFATE. [Concomitant]
     Active Substance: ALBUTEROL SULFATE
  4. ESBRIET [Suspect]
     Active Substance: PIRFENIDONE
     Dosage: TAKE 2 TABLETS BY MOUTH WITH BREAKFAST, 2 TABLETS WITH LUNCH AND 3 TABLETS WITH DINNER
     Route: 048

REACTIONS (2)
  - Dysphagia [Unknown]
  - Hiatus hernia [Not Recovered/Not Resolved]
